FAERS Safety Report 5497960-7 (Version None)
Quarter: 2007Q4

REPORT INFORMATION
  Report Type: 
  Country: None (occurrence: None)
  Receive Date: 20071025
  Receipt Date: 20071015
  Transmission Date: 20080405
  Serious: Yes (Other)
  Sender: FDA-Public Use
  Company Number: ES-PFIZER INC-2006025443

PATIENT
  Age: 76 Year
  Sex: Male

DRUGS (1)
  1. CELECOXIB [Suspect]
     Indication: ARTHRALGIA
     Route: 048

REACTIONS (1)
  - EXTRAPYRAMIDAL DISORDER [None]
